FAERS Safety Report 14938477 (Version 2)
Quarter: 2018Q2

REPORT INFORMATION
  Report Type: Spontaneous
  Country: US (occurrence: DE)
  Receive Date: 20180525
  Receipt Date: 20180601
  Transmission Date: 20180711
  Serious: Yes (Other)
  Sender: FDA-Public Use
  Company Number: US-SUNOVION-2018SUN002084

PATIENT

DRUGS (5)
  1. VOTUM [Concomitant]
     Active Substance: OLMESARTAN MEDOXOMIL
  2. INDACATEROL [Suspect]
     Active Substance: INDACATEROL
     Indication: PRODUCT USED FOR UNKNOWN INDICATION
     Dosage: 1 DF, QD
     Route: 065
  3. XOLAIR [Concomitant]
     Active Substance: OMALIZUMAB
     Dosage: 150 MG, UNK
     Dates: start: 2015, end: 20180308
  4. SPIRIVA [Concomitant]
     Active Substance: TIOTROPIUM BROMIDE MONOHYDRATE
  5. LERCANIDIPINA [Concomitant]
     Active Substance: LERCANIDIPINE
     Dosage: 10 MG, UNK

REACTIONS (1)
  - Meningioma [Unknown]
